FAERS Safety Report 10929104 (Version 2)
Quarter: 2015Q2

REPORT INFORMATION
  Report Type: Spontaneous
  Country: US (occurrence: US)
  Receive Date: 20150319
  Receipt Date: 20150524
  Transmission Date: 20150821
  Serious: Yes (Other)
  Sender: FDA-Public Use
  Company Number: US-JNJFOC-20140212368

PATIENT

DRUGS (1)
  1. METHYLPHENIDATE HYDROCHLORIDE. [Suspect]
     Active Substance: METHYLPHENIDATE HYDROCHLORIDE
     Indication: FATIGUE
     Dosage: 5 MG EVERY 2 HOUR, AS NEEDED
     Route: 048

REACTIONS (3)
  - Toxicity to various agents [Unknown]
  - Product use issue [Unknown]
  - Drug ineffective for unapproved indication [Unknown]
